FAERS Safety Report 8806727 (Version 1)
Quarter: 2012Q4

REPORT INFORMATION
  Report Type: 
  Country: IN (occurrence: IN)
  Receive Date: 20120925
  Receipt Date: 20120925
  Transmission Date: 20130627
  Serious: Yes (Other)
  Sender: FDA-Public Use
  Company Number: PHHY2012IN081197

PATIENT
  Age: 55 Year
  Sex: Male

DRUGS (1)
  1. METRONIDAZOLE [Suspect]
     Indication: TOOTH ABSCESS

REACTIONS (8)
  - Drug eruption [Unknown]
  - Skin plaque [Unknown]
  - Erythema [Unknown]
  - Pain [Unknown]
  - Skin lesion [Unknown]
  - Lymphocytosis [Unknown]
  - Epidermal necrosis [Unknown]
  - Dermatitis bullous [Unknown]
